FAERS Safety Report 15725010 (Version 1)
Quarter: 2018Q4

REPORT INFORMATION
  Report Type: Spontaneous
  Country: PL (occurrence: PL)
  Receive Date: 20181214
  Receipt Date: 20181214
  Transmission Date: 20190205
  Serious: Yes (Life-Threatening, Hospitalization, Other)
  Sender: FDA-Public Use
  Company Number: PL-MYLANLABS-2018M1093284

PATIENT
  Sex: Male

DRUGS (3)
  1. ZALASTA [Concomitant]
     Active Substance: OLANZAPINE
     Indication: PRODUCT USED FOR UNKNOWN INDICATION
     Dosage: UNK
     Route: 065
     Dates: start: 2005
  2. OLANZAPINE. [Concomitant]
     Active Substance: OLANZAPINE
     Indication: PRODUCT USED FOR UNKNOWN INDICATION
     Dosage: UNK
     Route: 065
     Dates: start: 2005
  3. ARIPIPRAZOLE. [Suspect]
     Active Substance: ARIPIPRAZOLE
     Indication: SCHIZOPHRENIA
     Dosage: 15 MG, QD
     Route: 048
     Dates: start: 2009, end: 20120402

REACTIONS (13)
  - Lung operation [Unknown]
  - Appendicitis [Not Recovered/Not Resolved]
  - Portal vein thrombosis [Unknown]
  - Abdominal pain upper [Not Recovered/Not Resolved]
  - Post procedural infection [Unknown]
  - Coma [Recovered/Resolved]
  - Abdominal operation [Not Recovered/Not Resolved]
  - Umbilical hernia [Unknown]
  - Intestinal ischaemia [Unknown]
  - Constipation [Not Recovered/Not Resolved]
  - Vomiting [Not Recovered/Not Resolved]
  - Pulmonary thrombosis [Unknown]
  - Suicide attempt [Unknown]

NARRATIVE: CASE EVENT DATE: 2011
